FAERS Safety Report 5754784-0 (Version None)
Quarter: 2008Q2

REPORT INFORMATION
  Report Type: 
  Country: None (occurrence: None)
  Receive Date: 20080527
  Receipt Date: 20080506
  Transmission Date: 20081010
  Serious: Yes (Hospitalization)
  Sender: FDA-Public Use
  Company Number: 2008AL003655

PATIENT
  Age: 69 Year
  Sex: Female
  Weight: 45.3597 kg

DRUGS (1)
  1. DIGOXIN [Suspect]

REACTIONS (5)
  - FALL [None]
  - FATIGUE [None]
  - HYPERTENSION [None]
  - NAUSEA [None]
  - VOMITING [None]
